FAERS Safety Report 7537916-3 (Version None)
Quarter: 2011Q2

REPORT INFORMATION
  Report Type: 
  Country: None (occurrence: None)
  Receive Date: 20110609
  Receipt Date: 20110603
  Transmission Date: 20111010
  Serious: Yes (Death, Hospitalization, Other)
  Sender: FDA-Public Use
  Company Number: US-CELGENEUS-163-21880-09122105

PATIENT
  Sex: Male
  Weight: 92.162 kg

DRUGS (18)
  1. GEMCITABINE [Suspect]
     Dosage: 750 MILLIGRAM/KILOGRAM
     Route: 051
     Dates: start: 20091105
  2. GEMCITABINE [Suspect]
     Route: 051
     Dates: start: 20090501
  3. ASPIRIN [Concomitant]
     Indication: PROPHYLAXIS
     Dosage: 81 MILLIGRAM
     Route: 048
     Dates: start: 20091105
  4. REVLIMID [Suspect]
     Route: 048
     Dates: start: 20090501
  5. PLATELETS [Concomitant]
     Dosage: 1UNIT
     Route: 051
     Dates: start: 20091201, end: 20091201
  6. GEMCITABINE [Suspect]
     Dosage: 750 MILLIGRAM/KILOGRAM
     Route: 051
     Dates: start: 20091203, end: 20091217
  7. AMITIZA [Concomitant]
     Dosage: 8 MILLIGRAM
     Route: 048
     Dates: start: 20091001
  8. M.V.I. [Concomitant]
     Dosage: 1
     Route: 048
     Dates: start: 20080901
  9. HYDROCODONE BITARTRATE [Concomitant]
     Dosage: 5/500MG
     Route: 048
     Dates: start: 20091103
  10. LMWH [Concomitant]
     Indication: PROPHYLAXIS
     Route: 065
  11. WARFARIN SODIUM [Concomitant]
     Indication: PROPHYLAXIS
     Route: 065
  12. PLATELETS [Concomitant]
     Dosage: 2 UNITS
     Route: 051
     Dates: start: 20091201, end: 20091201
  13. CREON [Concomitant]
     Dosage: 20 MILLIGRAM
     Route: 048
     Dates: start: 20080801
  14. VITAMIN B-12 [Concomitant]
     Dosage: 1000 MICROGRAM
     Route: 065
  15. PREDNISONE [Concomitant]
     Dosage: 20 MILLIGRAM
     Route: 065
  16. MEGACE [Concomitant]
     Dosage: 40 MILLIGRAM
     Route: 065
  17. REVLIMID [Suspect]
     Dosage: 20 MILLIGRAM
     Route: 048
     Dates: start: 20091105, end: 20091223
  18. NOVOLOG [Concomitant]
     Route: 065

REACTIONS (5)
  - THROMBOCYTOPENIA [None]
  - ACUTE RESPIRATORY FAILURE [None]
  - HYPERGLYCAEMIA [None]
  - SEPSIS [None]
  - DEEP VEIN THROMBOSIS [None]
